FAERS Safety Report 17389462 (Version 1)
Quarter: 2020Q1

REPORT INFORMATION
  Report Type: Report from Study
  Country: US (occurrence: US)
  Receive Date: 20200207
  Receipt Date: 20200207
  Transmission Date: 20200409
  Serious: Yes (Hospitalization, Other)
  Sender: FDA-Public Use
  Company Number: US-ROCHE-2459371

PATIENT
  Sex: Male

DRUGS (27)
  1. VENCLEXTA [Suspect]
     Active Substance: VENETOCLAX
     Indication: B-CELL LYMPHOMA
     Dosage: ONGOING:YES( TAKE 4TABLETS I.E 400MG  BY MOUTH DAILY)
     Route: 048
     Dates: start: 20190606
  2. GAZYVA [Suspect]
     Active Substance: OBINUTUZUMAB
     Indication: B-CELL LYMPHOMA
     Route: 065
     Dates: start: 20190606
  3. PROVENTIL HFA [SALBUTAMOL] [Concomitant]
     Indication: WHEEZING
     Dosage: 108 (90 BASE) MCG/ ACT INHALER, 2 PUFFS EVERY 6 HOURS AS NEEDED
     Route: 065
  4. PROCHLORPERAZINE. [Concomitant]
     Active Substance: PROCHLORPERAZINE
     Indication: VOMITING
  5. KENALOG [Concomitant]
     Active Substance: TRIAMCINOLONE ACETONIDE
     Route: 061
  6. PEPCID [Concomitant]
     Active Substance: FAMOTIDINE
     Route: 048
  7. LASIX [Concomitant]
     Active Substance: FUROSEMIDE
     Dosage: ONGOING:YES
     Route: 065
  8. IBRUTINIB [Concomitant]
     Active Substance: IBRUTINIB
     Route: 065
  9. RITUXAN [Suspect]
     Active Substance: RITUXIMAB
     Indication: B-CELL LYMPHOMA
  10. ZYLOPRIM [Concomitant]
     Active Substance: ALLOPURINOL
     Dosage: 1 TAB BY MOUTH DAILY
     Route: 031
  11. FLONASE [Concomitant]
     Active Substance: FLUTICASONE PROPIONATE
  12. LEVAQUIN [Concomitant]
     Active Substance: LEVOFLOXACIN
     Route: 065
  13. VIAGRA [Concomitant]
     Active Substance: SILDENAFIL CITRATE
     Indication: ERECTILE DYSFUNCTION
     Dosage: AS NEEDED
     Route: 001
  14. BENDAMUSTINE [Concomitant]
     Active Substance: BENDAMUSTINE
     Route: 065
     Dates: start: 20190116
  15. VENTOLIN HFA [Concomitant]
     Active Substance: ALBUTEROL SULFATE
     Indication: WHEEZING
     Dosage: 108 (90 BASE) MCG/ ACT INHALER, 2 PUFFS EVERY 6 HOURS AS NEEDED
     Route: 065
  16. GAZYVA [Suspect]
     Active Substance: OBINUTUZUMAB
     Indication: CHRONIC LYMPHOCYTIC LEUKAEMIA
  17. ZOVIRAX [Concomitant]
     Active Substance: ACYCLOVIR
     Route: 048
  18. NORVASC [Concomitant]
     Active Substance: AMLODIPINE BESYLATE
     Dosage: 2 TABS BY MOUTH DAILY
     Route: 048
  19. ATIVAN [Concomitant]
     Active Substance: LORAZEPAM
     Dosage: 2 TABS BY MOUTH AS NEEDED, PRIOR TO MRI
     Route: 065
  20. RITUXAN [Suspect]
     Active Substance: RITUXIMAB
     Indication: CHRONIC LYMPHOCYTIC LEUKAEMIA
     Route: 065
     Dates: start: 20190116
  21. OSCAL [CALCIUM CARBONATE] [Concomitant]
     Dosage: 500-200 MG-UNIT, 1 TAB BY MOUTH DAILY
     Route: 048
  22. ZOFRAN [Concomitant]
     Active Substance: ONDANSETRON HYDROCHLORIDE
     Indication: NAUSEA
     Dosage: PRN
     Route: 048
  23. ZOFRAN [Concomitant]
     Active Substance: ONDANSETRON HYDROCHLORIDE
     Indication: VOMITING
  24. KLOR-CON M20 [Concomitant]
     Active Substance: POTASSIUM CHLORIDE
     Route: 065
  25. PROCHLORPERAZINE. [Concomitant]
     Active Substance: PROCHLORPERAZINE
     Indication: NAUSEA
     Route: 065
  26. ZYRTEC R [Concomitant]
     Active Substance: CETIRIZINE HYDROCHLORIDE
     Route: 065
  27. NEULASTA [Concomitant]
     Active Substance: PEGFILGRASTIM
     Route: 065
     Dates: start: 20190809

REACTIONS (7)
  - Renal failure [Unknown]
  - Hepatic cancer [Unknown]
  - Neoplasm progression [Unknown]
  - Ill-defined disorder [Unknown]
  - Neutropenia [Unknown]
  - Pathological fracture [Unknown]
  - Hypercalcaemia [Unknown]
